FAERS Safety Report 9174983 (Version 2)
Quarter: 2013Q4

REPORT INFORMATION
  Report Type: Report from Study
  Country: BR (occurrence: BR)
  Receive Date: 20130320
  Receipt Date: 20131120
  Transmission Date: 20140711
  Serious: Yes (Hospitalization, Other)
  Sender: FDA-Public Use
  Company Number: BR-VIIV HEALTHCARE LIMITED-B0785459A

PATIENT
  Age: 51 Year
  Sex: Female
  Weight: 52.1 kg

DRUGS (5)
  1. MARAVIROC [Suspect]
     Indication: HIV INFECTION
     Dosage: 150MG TWICE PER DAY
     Route: 048
     Dates: start: 20080605
  2. DARUNAVIR [Concomitant]
     Indication: HIV INFECTION
     Dates: start: 20080605
  3. RITONAVIR [Concomitant]
     Indication: HIV INFECTION
     Dates: start: 20050706
  4. RALTEGRAVIR [Concomitant]
     Indication: HIV INFECTION
     Dates: start: 20100709
  5. AMITRIPTYLINE [Concomitant]
     Route: 065
     Dates: start: 2006

REACTIONS (2)
  - Postoperative wound infection [Recovered/Resolved]
  - Cervix carcinoma [Recovered/Resolved]
